FAERS Safety Report 4988681-5 (Version None)
Quarter: 2006Q2

REPORT INFORMATION
  Report Type: 
  Country: None (occurrence: None)
  Receive Date: 20060502
  Receipt Date: 20060421
  Transmission Date: 20061013
  Serious: Yes (Other)
  Sender: FDA-Public Use
  Company Number: US-ABBOTT-06P-163-0331404-00

PATIENT
  Sex: Male
  Weight: 58.566 kg

DRUGS (27)
  1. HYDROMORPHONE HCL [Suspect]
     Indication: RENAL PAIN
     Route: 048
     Dates: start: 20050624
  2. DEPAKOTE [Suspect]
     Indication: CONVULSION
     Dates: end: 20051105
  3. DEPAKOTE [Suspect]
     Dates: start: 20051105
  4. CEP-25608 [Suspect]
     Indication: BREAKTHROUGH PAIN
     Route: 002
     Dates: start: 20050712, end: 20051019
  5. DRONABINOL [Suspect]
     Indication: DECREASED APPETITE
     Route: 048
     Dates: start: 20050601
  6. OXYCODONE [Suspect]
     Indication: RENAL PAIN
     Route: 048
     Dates: start: 20050607
  7. PETHIDINE HYDROCHLORIDE [Suspect]
     Indication: RENAL PAIN
     Route: 030
     Dates: start: 20050707
  8. FENTANYL CITRATE [Suspect]
     Indication: RENAL PAIN
     Route: 002
     Dates: start: 20050628, end: 20050629
  9. FENTANYL CITRATE [Suspect]
     Route: 065
     Dates: start: 20050629, end: 20050630
  10. FENTANYL CITRATE [Suspect]
     Route: 065
     Dates: start: 20050630, end: 20050705
  11. FENTANYL CITRATE [Suspect]
     Route: 065
     Dates: start: 20050705, end: 20050708
  12. FENTANYL CITRATE [Suspect]
     Route: 065
     Dates: start: 20050708, end: 20050712
  13. FENTANYL CITRATE [Suspect]
     Route: 065
     Dates: start: 20050712, end: 20050815
  14. FENTANYL CITRATE [Suspect]
     Route: 065
     Dates: start: 20050816, end: 20050818
  15. FENTANYL CITRATE [Suspect]
     Route: 065
     Dates: start: 20050818, end: 20050822
  16. FENTANYL CITRATE [Suspect]
     Route: 065
     Dates: start: 20050822, end: 20050824
  17. FENTANYL CITRATE [Suspect]
     Route: 065
     Dates: start: 20050824, end: 20050915
  18. FENTANYL CITRATE [Suspect]
     Route: 065
     Dates: start: 20050915, end: 20050922
  19. FENTANYL CITRATE [Suspect]
     Route: 065
     Dates: start: 20050922, end: 20051025
  20. FENTANYL CITRATE [Suspect]
     Route: 065
     Dates: start: 20051025
  21. FENTANYL [Suspect]
     Indication: RENAL PAIN
     Route: 062
     Dates: start: 20050629, end: 20051025
  22. FENTANYL [Suspect]
     Route: 062
     Dates: start: 20051025
  23. MORPHINE [Suspect]
     Indication: RENAL PAIN
     Route: 030
     Dates: start: 20050822
  24. CARISOPRODOL [Concomitant]
     Indication: DRUG USE FOR UNKNOWN INDICATION
     Dates: start: 20050401
  25. DIAZEPAM [Concomitant]
     Indication: DRUG USE FOR UNKNOWN INDICATION
     Dates: start: 20030801
  26. POTASSIUM CITRATE [Concomitant]
     Indication: DRUG USE FOR UNKNOWN INDICATION
     Dates: start: 20010301
  27. PROMETHAZINE HCL [Concomitant]
     Indication: NAUSEA
     Dates: start: 20050707

REACTIONS (6)
  - AGGRESSION [None]
  - AGITATION [None]
  - BLOOD PROLACTIN INCREASED [None]
  - CONVULSION [None]
  - DRUG LEVEL DECREASED [None]
  - HEAD INJURY [None]
